FAERS Safety Report 8144902-1 (Version None)
Quarter: 2012Q1

REPORT INFORMATION
  Report Type: 
  Country: None (occurrence: None)
  Receive Date: 20120217
  Receipt Date: 20120215
  Transmission Date: 20120608
  Serious: Yes (Disabling)
  Sender: FDA-Public Use
  Company Number: US-MERCK-1201USA01692

PATIENT
  Sex: Female

DRUGS (3)
  1. TAXOTERE [Concomitant]
     Route: 065
  2. FOSAPREPITANT DIMEGLUMINE [Suspect]
     Indication: PROPHYLAXIS OF NAUSEA AND VOMITING
     Route: 042
     Dates: start: 20110101
  3. DEXAMETHASONE [Concomitant]
     Route: 048

REACTIONS (4)
  - PAIN [None]
  - INFUSION SITE DISCOLOURATION [None]
  - BURNING SENSATION [None]
  - VASCULAR COMPRESSION [None]
